FAERS Safety Report 9450269 (Version 2)
Quarter: 2013Q4

REPORT INFORMATION
  Report Type: Spontaneous
  Country: US (occurrence: US)
  Receive Date: 20130809
  Receipt Date: 20131127
  Transmission Date: 20140711
  Serious: Yes (Hospitalization)
  Sender: FDA-Public Use
  Company Number: US-BAXTER-2013BAX030731

PATIENT
  Age: 70 Year
  Sex: Female
  Weight: 89.44 kg

DRUGS (6)
  1. DIANEAL LOW CALCIUM [Suspect]
     Indication: PERITONEAL DIALYSIS
     Route: 033
     Dates: start: 201305, end: 201307
  2. DIANEAL LOW CALCIUM [Suspect]
     Route: 033
     Dates: start: 20131114
  3. DIANEAL LOW CALCIUM [Suspect]
     Indication: PERITONEAL DIALYSIS
     Route: 033
     Dates: start: 20130513, end: 201307
  4. DIANEAL LOW CALCIUM [Suspect]
     Route: 033
     Dates: start: 20131114
  5. PREDNISONE [Suspect]
     Indication: AUTOIMMUNE DISORDER
     Route: 048
     Dates: start: 201307
  6. PREDNISONE [Suspect]
     Route: 048
     Dates: start: 2013

REACTIONS (5)
  - Immune system disorder [Unknown]
  - Pneumonia [Recovered/Resolved]
  - Weight increased [Recovering/Resolving]
  - Ultrafiltration failure [Unknown]
  - Accidental overdose [Unknown]
